FAERS Safety Report 23677311 (Version 1)
Quarter: 2024Q1

REPORT INFORMATION
  Report Type: Spontaneous
  Country: FR (occurrence: FR)
  Receive Date: 20240327
  Receipt Date: 20240327
  Transmission Date: 20240410
  Serious: Yes (Hospitalization)
  Sender: FDA-Public Use
  Company Number: None

PATIENT
  Age: 7 Month
  Sex: Female
  Weight: 7.37 kg

DRUGS (12)
  1. NEORAL [Suspect]
     Active Substance: CYCLOSPORINE
     Indication: Autoimmune haemolytic anaemia
     Dosage: 4 MG/KG BID
     Route: 048
     Dates: start: 20240216, end: 20240217
  2. NEORAL [Suspect]
     Active Substance: CYCLOSPORINE
  3. CYCLOSPORINE [Suspect]
     Active Substance: CYCLOSPORINE
     Indication: Autoimmune haemolytic anaemia
     Dosage: 6 MG/KG, QD
     Route: 042
     Dates: start: 20240202, end: 20240204
  4. CYCLOSPORINE [Suspect]
     Active Substance: CYCLOSPORINE
     Dosage: 4 MG/KG, QD
     Route: 042
     Dates: start: 20240205, end: 20240214
  5. VINBLASTINE SULFATE [Concomitant]
     Active Substance: VINBLASTINE SULFATE
     Indication: Autoimmune haemolytic anaemia
     Dosage: 1.6 MG, ONCE/SINGLE
     Route: 042
     Dates: start: 20240213, end: 20240213
  6. FOLINATE DE CALCIUM AGUETTANT [Concomitant]
     Indication: Product used for unknown indication
     Dosage: 10 MG, QD
     Route: 042
     Dates: start: 20240109
  7. ESOMEPRAZOLE [Concomitant]
     Active Substance: ESOMEPRAZOLE
     Indication: Gastrooesophageal reflux disease
     Dosage: 1.4 MG/KG, QD (ORAL SUSPENSION IN SACHET-DOSE)
     Route: 048
     Dates: start: 202308
  8. BACTRIM [Concomitant]
     Active Substance: SULFAMETHOXAZOLE\TRIMETHOPRIM
     Indication: Opportunistic infection prophylaxis
     Dosage: 26 MG/KG, QD
     Route: 048
     Dates: start: 20240109
  9. RITUXIMAB [Concomitant]
     Active Substance: RITUXIMAB
     Indication: Autoimmune haemolytic anaemia
     Dosage: 140 MG, QW
     Route: 042
     Dates: start: 20231225
  10. PREDNISONE [Concomitant]
     Active Substance: PREDNISONE
     Indication: Autoimmune haemolytic anaemia
     Dosage: 1 MG/KG, QD
     Route: 048
     Dates: start: 20240203
  11. EPOETIN BETA [Concomitant]
     Active Substance: ERYTHROPOIETIN
     Indication: Autoimmune haemolytic anaemia
     Dosage: 500 IU, QW
     Route: 065
     Dates: start: 202401
  12. CLAIRYG [Concomitant]
     Active Substance: HUMAN IMMUNOGLOBULIN G
     Indication: Autoimmune haemolytic anaemia
     Dosage: 1 GRAM PER KILOGRAM, QW
     Route: 042
     Dates: start: 20240106

REACTIONS (1)
  - Cholelithiasis [Recovering/Resolving]

NARRATIVE: CASE EVENT DATE: 20240218
